FAERS Safety Report 21976321 (Version 1)
Quarter: 2023Q1

REPORT INFORMATION
  Report Type: Other
  Country: US (occurrence: US)
  Receive Date: 20230210
  Receipt Date: 20230210
  Transmission Date: 20230417
  Serious: No
  Sender: FDA-Public Use
  Company Number: US-GLENMARK PHARMACEUTICALS-2022GMK073161

PATIENT

DRUGS (2)
  1. HEATHER [Suspect]
     Active Substance: NORETHINDRONE
     Indication: Oral contraception
     Dosage: UNK
     Route: 048
  2. SPIRONOLACTONE [Concomitant]
     Active Substance: SPIRONOLACTONE
     Indication: Product used for unknown indication
     Dosage: UNK
     Route: 065

REACTIONS (6)
  - Drug intolerance [Unknown]
  - Dysmenorrhoea [Unknown]
  - Nausea [Unknown]
  - Intermenstrual bleeding [Unknown]
  - Menstruation irregular [Unknown]
  - Product substitution issue [Unknown]
